FAERS Safety Report 5444161-4 (Version None)
Quarter: 2007Q3

REPORT INFORMATION
  Report Type: 
  Country: None (occurrence: None)
  Receive Date: 20070904
  Receipt Date: 20070904
  Transmission Date: 20080115
  Serious: Yes (Other)
  Sender: FDA-Public Use
  Company Number: None

PATIENT
  Sex: Male
  Weight: 88.9 kg

DRUGS (1)
  1. TIKOSYN [Suspect]
     Indication: ATRIAL FIBRILLATION
     Dosage: ONCE BID PO
     Route: 048
     Dates: start: 20040701

REACTIONS (2)
  - DISEASE RECURRENCE [None]
  - PNEUMONIA [None]
